FAERS Safety Report 9054026 (Version 2)
Quarter: 2013Q1

REPORT INFORMATION
  Report Type: Report from Study
  Country: JP (occurrence: JP)
  Receive Date: 20130208
  Receipt Date: 20130220
  Transmission Date: 20140127
  Serious: Yes (Other)
  Sender: FDA-Public Use
  Company Number: JP-ASTELLAS-2013JP001313

PATIENT
  Age: 65 None
  Sex: Female
  Weight: 69.4 kg

DRUGS (10)
  1. SOLIFENACIN [Suspect]
     Indication: HYPERTONIC BLADDER
     Dosage: 5 MG, UID/QD
     Route: 048
     Dates: start: 20121017
  2. SOLIFENACIN [Suspect]
     Dosage: UNK
     Route: 048
     Dates: start: 20100917
  3. VESICARE [Suspect]
     Indication: HYPERTONIC BLADDER
     Dosage: 5 MG, UID/QD
     Route: 048
     Dates: start: 20110920, end: 20121016
  4. MIRABEGRON [Suspect]
     Indication: HYPERTONIC BLADDER
     Dosage: 50 MG, UID/QD
     Route: 048
     Dates: start: 20121227
  5. MIRABEGRON [Suspect]
     Dosage: 25 MG, UID/QD
     Route: 048
     Dates: start: 20121031, end: 20121226
  6. LIPITOR [Concomitant]
     Indication: DYSLIPIDAEMIA
     Dosage: 10 MG, UID/QD
     Route: 048
  7. TANATRIL [Concomitant]
     Indication: HYPERTENSION
     Dosage: 5 MG, UID/QD
     Route: 048
  8. PROTECADIN [Concomitant]
     Indication: GASTRIC ULCER
     Dosage: 10 MG, BID
     Route: 048
  9. EPADEL-S [Concomitant]
     Indication: DYSLIPIDAEMIA
     Dosage: 900 MG, BID
     Route: 048
  10. MAGNESIUM OXIDE [Concomitant]
     Indication: CONSTIPATION
     Dosage: 330 MG, BID
     Route: 048

REACTIONS (1)
  - Polymyalgia rheumatica [Recovering/Resolving]
